FAERS Safety Report 4750257-2 (Version None)
Quarter: 2005Q3

REPORT INFORMATION
  Report Type: 
  Country: None (occurrence: None)
  Receive Date: 20050818
  Receipt Date: 20050812
  Transmission Date: 20060218
  Serious: Yes (Hospitalization)
  Sender: FDA-Public Use
  Company Number: 200510137BFR

PATIENT
  Age: 37 Year
  Sex: Female
  Weight: 70 kg

DRUGS (1)
  1. ADALAT [Suspect]
     Indication: THREATENED LABOUR
     Dosage: 20 MG, BID, ORAL
     Route: 048
     Dates: start: 20050211

REACTIONS (5)
  - DRUG EXPOSURE DURING PREGNANCY [None]
  - POSTPARTUM DISORDER [None]
  - POSTPARTUM HAEMORRHAGE [None]
  - UTERINE ATONY [None]
  - UTERINE ENLARGEMENT [None]
